FAERS Safety Report 14965406 (Version 1)
Quarter: 2018Q2

REPORT INFORMATION
  Report Type: Spontaneous
  Country: US (occurrence: US)
  Receive Date: 20180601
  Receipt Date: 20180601
  Transmission Date: 20180711
  Serious: No
  Sender: FDA-Public Use
  Company Number: US-BAUSCH-BL-2017-031368

PATIENT
  Age: 68 Year
  Sex: Male
  Weight: 74.91 kg

DRUGS (4)
  1. ELIDEL [Suspect]
     Active Substance: PIMECROLIMUS
     Indication: EYE PRURITUS
  2. FINASTERIDE. [Concomitant]
     Active Substance: FINASTERIDE
     Indication: PRODUCT USED FOR UNKNOWN INDICATION
  3. FLUTICASONE. [Concomitant]
     Active Substance: FLUTICASONE
     Indication: PRODUCT USED FOR UNKNOWN INDICATION
  4. ELIDEL [Suspect]
     Active Substance: PIMECROLIMUS
     Indication: DRY EYE
     Route: 061
     Dates: end: 2017

REACTIONS (3)
  - Eye infection [Recovered/Resolved]
  - Hordeolum [Recovered/Resolved]
  - Accidental exposure to product [Unknown]

NARRATIVE: CASE EVENT DATE: 2017
